FAERS Safety Report 18981063 (Version 1)
Quarter: 2021Q1

REPORT INFORMATION
  Report Type: Spontaneous
  Country: GB (occurrence: GB)
  Receive Date: 20210308
  Receipt Date: 20210308
  Transmission Date: 20210420
  Serious: Yes (Other)
  Sender: FDA-Public Use
  Company Number: GB-PFIZER INC-2021210296

PATIENT
  Age: 51 Year
  Sex: Male

DRUGS (5)
  1. VELCADE [Suspect]
     Active Substance: BORTEZOMIB
     Dosage: UNK (8 CYCLES)
     Route: 065
     Dates: start: 201809
  2. ZOLEDRONIC ACID [Suspect]
     Active Substance: ZOLEDRONIC ACID
     Dosage: UNK (16)
     Route: 065
     Dates: start: 2017, end: 2019
  3. VELCADE [Suspect]
     Active Substance: BORTEZOMIB
     Dosage: UNK, CYCLIC (4 CYCLES)
     Route: 065
     Dates: start: 2017
  4. DEXAMETHASONE SODIUM PHOSPHATE. [Suspect]
     Active Substance: DEXAMETHASONE SODIUM PHOSPHATE
     Dosage: UNK UNK, CYCLIC (8 CYCLES)
     Route: 065
     Dates: start: 201809
  5. CYCLOPHOSPHAMIDE. [Suspect]
     Active Substance: CYCLOPHOSPHAMIDE
     Dosage: UNK, CYCLIC (8 CYCLES)
     Route: 065
     Dates: start: 201809

REACTIONS (1)
  - Condition aggravated [Unknown]

NARRATIVE: CASE EVENT DATE: 201809
